FAERS Safety Report 10795118 (Version 1)
Quarter: 2015Q1

REPORT INFORMATION
  Report Type: Spontaneous
  Country: US (occurrence: US)
  Receive Date: 20150214
  Receipt Date: 20150214
  Transmission Date: 20150721
  Serious: No
  Sender: FDA-Public Use
  Company Number: US-GLAXOSMITHKLINE-A1087678A

PATIENT

DRUGS (8)
  1. ADVAIR DISKUS [Suspect]
     Active Substance: FLUTICASONE PROPIONATE\SALMETEROL XINAFOATE
     Indication: CHRONIC OBSTRUCTIVE PULMONARY DISEASE
     Dosage: 115/21
     Route: 055
  2. LOSARTAN [Concomitant]
     Active Substance: LOSARTAN
  3. ELIQUIS [Concomitant]
     Active Substance: APIXABAN
  4. LOVASTATIN. [Concomitant]
     Active Substance: LOVASTATIN
  5. OSCAL [Concomitant]
     Active Substance: CALCIUM CARBONATE
  6. ATENOLOL. [Concomitant]
     Active Substance: ATENOLOL
  7. DIGOXIN. [Concomitant]
     Active Substance: DIGOXIN
  8. NIFEDICAL XL [Concomitant]
     Active Substance: NIFEDIPINE

REACTIONS (3)
  - Malaise [Unknown]
  - Arrhythmia [Recovering/Resolving]
  - Underdose [Unknown]
